FAERS Safety Report 5566962-4 (Version None)
Quarter: 2007Q4

REPORT INFORMATION
  Report Type: 
  Country: None (occurrence: None)
  Receive Date: 20071219
  Receipt Date: 20070711
  Transmission Date: 20080405
  Serious: No
  Sender: FDA-Public Use
  Company Number: US-BRISTOL-MYERS SQUIBB COMPANY-13841457

PATIENT
  Sex: Female
  Weight: 100 kg

DRUGS (5)
  1. PRAVACHOL [Suspect]
     Indication: BLOOD CHOLESTEROL INCREASED
     Route: 048
  2. GLUCOVANCE [Suspect]
     Dosage: 5/500 MG 2 TABS DAILY STARTED IN 2001; RECENTLY INCR TO 3 TABS DAILY
     Route: 048
  3. ACTONEL [Concomitant]
  4. LANTUS [Concomitant]
  5. AVAPRO [Concomitant]

REACTIONS (1)
  - MYALGIA [None]
